FAERS Safety Report 8262008-8 (Version None)
Quarter: 2012Q2

REPORT INFORMATION
  Report Type: 
  Country: None (occurrence: None)
  Receive Date: 20120405
  Receipt Date: 20120403
  Transmission Date: 20120825
  Serious: Yes (Hospitalization)
  Sender: FDA-Public Use
  Company Number: US-BAYER-2012-032743

PATIENT
  Age: 59 Year
  Sex: Male

DRUGS (22)
  1. CENTRUM [Concomitant]
     Dosage: UNK, QD
  2. HYDROCODONE BITARTRATE AND ACETAMINOPHEN [Concomitant]
     Dosage: UNK, HS
  3. DIAZEPAM [Concomitant]
  4. LACTULOSE [Concomitant]
     Dosage: UNK UNK, QD
  5. LIDODERM [Concomitant]
  6. OXYCODONE HCL [Concomitant]
  7. RITALIN [Concomitant]
  8. METOCLOPRAM [Concomitant]
     Dosage: 4 DF, QD
     Route: 048
  9. FUROSEMIDE [Concomitant]
  10. PANTOPRAZOLE [Concomitant]
  11. PROPRANOLOL [Concomitant]
  12. MAGNESIUM [Concomitant]
  13. OXYCONTIN [Concomitant]
  14. SPIRONOLACTONE [Concomitant]
  15. NEXAVAR [Suspect]
     Indication: HEPATIC NEOPLASM MALIGNANT
     Dosage: 200 MG, BID
     Dates: start: 20100804
  16. LORAZEPAM [Concomitant]
  17. ALPRAZOLAM [Concomitant]
     Dosage: UNK UNK, QD
  18. HYDROMORPHONE HCL [Concomitant]
     Dosage: 0.5 DF, Q1HR
  19. GABAPENTIN [Concomitant]
  20. HYDROMORPHONE HCL [Concomitant]
  21. METHYLPHENIDATE [Concomitant]
  22. MIRTAZAPINE [Concomitant]

REACTIONS (3)
  - CONFUSIONAL STATE [None]
  - AMMONIA INCREASED [None]
  - FATIGUE [None]
